FAERS Safety Report 11097179 (Version 3)
Quarter: 2015Q2

REPORT INFORMATION
  Report Type: Spontaneous
  Country: KR (occurrence: KR)
  Receive Date: 20150507
  Receipt Date: 20150519
  Transmission Date: 20150821
  Serious: Yes (Death, Other)
  Sender: FDA-Public Use
  Company Number: KR-SA-2015SA056523

PATIENT
  Age: 50 Year
  Sex: Male

DRUGS (1)
  1. AUBAGIO [Suspect]
     Active Substance: TERIFLUNOMIDE
     Route: 048
     Dates: start: 201411, end: 201412

REACTIONS (8)
  - Polyneuropathy [Unknown]
  - Rash [Unknown]
  - Condition aggravated [Unknown]
  - Pneumonia [Unknown]
  - Death [Fatal]
  - Encephalomyelitis [Unknown]
  - Guillain-Barre syndrome [Unknown]
  - Immune reconstitution inflammatory syndrome [Unknown]

NARRATIVE: CASE EVENT DATE: 201411
